FAERS Safety Report 9874390 (Version 1)
Quarter: 2014Q1

REPORT INFORMATION
  Report Type: Spontaneous
  Country: CN (occurrence: CN)
  Receive Date: 20140206
  Receipt Date: 20140206
  Transmission Date: 20141002
  Serious: Yes (Death)
  Sender: FDA-Public Use
  Company Number: CN-ROCHE-1341349

PATIENT
  Sex: 0

DRUGS (1)
  1. CEFTRIAXONE SODIUM [Suspect]
     Indication: INFLUENZA
     Route: 041
     Dates: start: 20130512, end: 20130512

REACTIONS (4)
  - Cardiac disorder [Fatal]
  - Chest pain [Fatal]
  - Nausea [Fatal]
  - Vomiting [Fatal]
